FAERS Safety Report 5552122-X (Version None)
Quarter: 2007Q4

REPORT INFORMATION
  Report Type: 
  Country: None (occurrence: None)
  Receive Date: 20071210
  Receipt Date: 20071130
  Transmission Date: 20080405
  Serious: Yes (Hospitalization)
  Sender: FDA-Public Use
  Company Number: FRP07001132

PATIENT
  Age: 75 Year
  Sex: Female

DRUGS (8)
  1. ACTONEL [Suspect]
     Indication: OSTEOPOROSIS
     Dosage: 35 MG, 1/WEEK,ORAL
     Route: 048
     Dates: end: 20070703
  2. CACIT D3(CALCIUM CARBONATE, COLECALCIFEROL)) EFFERVESCENT GRANULES, 88 [Suspect]
     Dosage: 880 UNIT, DAILY, ORAL
     Route: 048
  3. ATORVASTATIN CALCIUM [Suspect]
  4. KARDEGIC /00002703(ACETYLSALICYLATE LYSINE) [Suspect]
  5. DIANTALVIC(DEXTROPROPOXYPHENE, PARACETAMOL) [Suspect]
  6. SECTRAL [Suspect]
  7. SOLIAN(AMISULPRIDE) [Suspect]
  8. FOLIC ACID [Suspect]

REACTIONS (2)
  - CHOLESTASIS [None]
  - CYTOLYTIC HEPATITIS [None]
